FAERS Safety Report 8343988-9 (Version None)
Quarter: 2012Q2

REPORT INFORMATION
  Report Type: 
  Country: None (occurrence: None)
  Receive Date: 20120508
  Receipt Date: 20120504
  Transmission Date: 20120825
  Serious: Yes (Other)
  Sender: FDA-Public Use
  Company Number: US-PFIZER INC-2012005012

PATIENT
  Sex: Female
  Weight: 70.9 kg

DRUGS (10)
  1. LIPITOR [Suspect]
     Indication: BLOOD CHOLESTEROL INCREASED
     Dosage: 10 MG, 1X/DAY
     Route: 048
  2. AMLODIPINE [Concomitant]
     Dosage: 5 MG, DAILY
  3. LIPITOR [Suspect]
     Indication: CAROTID ARTERY OCCLUSION
     Dosage: 10 MG, DAILY (20MG TABLET INTO HALF)
     Route: 048
  4. HYDROCHLOROTHIAZIDE [Concomitant]
     Indication: BLOOD PRESSURE ABNORMAL
     Dosage: 25 MG, DAILY
  5. ACETYLSALICYLIC ACID [Concomitant]
     Indication: CARDIOVASCULAR EVENT PROPHYLAXIS
     Dosage: 81 MG, DAILY
  6. LORAZEPAM [Concomitant]
     Dosage: 5 MG, 3X/DAY
  7. LISINOPRIL [Concomitant]
     Indication: BLOOD PRESSURE ABNORMAL
     Dosage: 40 MG, DAILY
  8. LIPITOR [Suspect]
     Indication: ARTERIAL DISORDER
  9. BILBERRY [Concomitant]
     Indication: EYE DISORDER
     Dosage: UNK
  10. PREMARIN [Concomitant]
     Dosage: UNK

REACTIONS (2)
  - WEIGHT INCREASED [None]
  - CARDIAC DISORDER [None]
